FAERS Safety Report 10387435 (Version 2)
Quarter: 2014Q3

REPORT INFORMATION
  Report Type: Spontaneous
  Country: US (occurrence: US)
  Receive Date: 20140815
  Receipt Date: 20140815
  Transmission Date: 20150326
  Serious: Yes (Other)
  Sender: FDA-Public Use
  Company Number: US-BAYER-2014-115961

PATIENT
  Sex: Male

DRUGS (2)
  1. PHILLIPS^ DIGESTIVE HEALTH SUPPORT [Suspect]
     Active Substance: PROBIOTICS NOS
     Dosage: 26 CAPS
  2. BAYER LOW DOSE [Suspect]
     Active Substance: ASPIRIN
     Dosage: 2 DF, BID
     Route: 048

REACTIONS (4)
  - Gastrointestinal haemorrhage [Unknown]
  - Intentional product misuse [Unknown]
  - Haemorrhagic anaemia [Unknown]
  - Drug effect incomplete [Unknown]
